FAERS Safety Report 7595485-6 (Version None)
Quarter: 2011Q3

REPORT INFORMATION
  Report Type: 
  Country: None (occurrence: None)
  Receive Date: 20110707
  Receipt Date: 20110627
  Transmission Date: 20111222
  Serious: Yes (Death)
  Sender: FDA-Public Use
  Company Number: FR-ROCHE-787731

PATIENT

DRUGS (6)
  1. ZIDOVUDINE [Suspect]
     Indication: HIV INFECTION
     Route: 065
  2. SAQUINAVIR [Suspect]
     Indication: HIV INFECTION
     Route: 065
  3. CISPLATIN [Suspect]
     Indication: NON-SMALL CELL LUNG CANCER STAGE IV
     Route: 065
  4. VINORELBINE [Suspect]
     Indication: NON-SMALL CELL LUNG CANCER STAGE IV
     Route: 065
  5. LAMIVUDINE [Suspect]
     Indication: HIV INFECTION
     Route: 065
  6. RITONAVIR [Suspect]
     Indication: HIV INFECTION
     Route: 065

REACTIONS (2)
  - SEPTIC SHOCK [None]
  - NEUTROPENIA [None]
